FAERS Safety Report 15782652 (Version 1)
Quarter: 2019Q1

REPORT INFORMATION
  Report Type: Spontaneous
  Country: OM (occurrence: OM)
  Receive Date: 20190102
  Receipt Date: 20190102
  Transmission Date: 20190417
  Serious: Yes (Hospitalization, Other)
  Sender: FDA-Public Use
  Company Number: OM-SA-2018SA396186

PATIENT
  Age: 34 Year
  Sex: Female

DRUGS (1)
  1. CLOMIFENE CITRATE [Suspect]
     Active Substance: CLOMIPHENE
     Indication: OVULATION INDUCTION
     Dosage: 2 CYCLES

REACTIONS (4)
  - Shock [Recovered/Resolved]
  - Ectopic pregnancy [Recovered/Resolved]
  - Cyst rupture [Recovered/Resolved]
  - Peritoneal haemorrhage [Recovered/Resolved]
